FAERS Safety Report 7010892 (Version 2)
Quarter: 2013Q4

REPORT INFORMATION
  Report Type: Spontaneous
  Country: US (occurrence: None)
  Receive Date: 20090526
  Receipt Date: 20131226
  Transmission Date: 20140711
  Serious: Yes (Other)
  Sender: FDA-Public Use
  Company Number: 2009S1004153

PATIENT
  Age: 66 Year
  Sex: Female
  Weight: 82.56 kg

DRUGS (3)
  1. FLEET PHOSPHO-SODA [Suspect]
     Indication: COLONOSCOPY
     Dosage: 2 IN 24 HOURS
     Route: 048
     Dates: start: 20041025, end: 20041025
  2. DEPAKOTE [Concomitant]
  3. ACEBUTOLOL [Concomitant]

REACTIONS (7)
  - Renal impairment [None]
  - Small cell lung cancer [None]
  - Renal failure acute [None]
  - Hypovolaemia [None]
  - Obstruction [None]
  - Renal atrophy [None]
  - Renal failure chronic [None]
